FAERS Safety Report 23941820 (Version 1)
Quarter: 2024Q2

REPORT INFORMATION
  Report Type: Spontaneous
  Country: US (occurrence: None)
  Receive Date: 20240604
  Receipt Date: 20240604
  Transmission Date: 20240716
  Serious: Yes (Other)
  Sender: FDA-Public Use
  Company Number: None

PATIENT
  Age: 44 Year
  Sex: Female
  Weight: 63 kg

DRUGS (1)
  1. TEPEZZA [Suspect]
     Active Substance: TEPROTUMUMAB-TRBW
     Indication: Endocrine ophthalmopathy
     Dosage: 1272 MG EVERY 3 WEEKS INTRAVENOUS?
     Route: 042
     Dates: start: 20240208, end: 20240522

REACTIONS (15)
  - Abdominal discomfort [None]
  - Diarrhoea [None]
  - Taste disorder [None]
  - Fatigue [None]
  - Menstruation irregular [None]
  - Arthralgia [None]
  - Arthralgia [None]
  - Arthralgia [None]
  - Skin discolouration [None]
  - Injection site mass [None]
  - Myalgia [None]
  - Muscle spasms [None]
  - Chronic fatigue syndrome [None]
  - Infusion related reaction [None]
  - Therapy interrupted [None]

NARRATIVE: CASE EVENT DATE: 20240522
